FAERS Safety Report 9309691 (Version 1)
Quarter: 2013Q2

REPORT INFORMATION
  Report Type: Spontaneous
  Country: US (occurrence: US)
  Receive Date: 20130525
  Receipt Date: 20130525
  Transmission Date: 20140414
  Serious: No
  Sender: FDA-Public Use
  Company Number: US-BRISTOL-MYERS SQUIBB COMPANY-18586735

PATIENT
  Age: 59 Year
  Sex: Female
  Weight: 96.15 kg

DRUGS (4)
  1. BYDUREON 2MG VIAL + SYRINGE [Suspect]
     Indication: TYPE 2 DIABETES MELLITUS
     Route: 058
     Dates: start: 201211
  2. HYDROCHLOROTHIAZIDE [Concomitant]
     Indication: HYPERTENSION
     Route: 048
  3. GLIMEPIRIDE [Concomitant]
     Indication: TYPE 2 DIABETES MELLITUS
     Route: 048
  4. AUGMENTIN [Concomitant]
     Indication: SINUSITIS
     Route: 048
     Dates: start: 20130205

REACTIONS (2)
  - Sinusitis [Recovering/Resolving]
  - Feeling abnormal [Recovered/Resolved]
